FAERS Safety Report 10153032 (Version 2)
Quarter: 2014Q2

REPORT INFORMATION
  Report Type: Report from Study
  Country: US (occurrence: US)
  Receive Date: 20140505
  Receipt Date: 20140626
  Transmission Date: 20141212
  Serious: Yes (Hospitalization)
  Sender: FDA-Public Use
  Company Number: PHEH2014US008809

PATIENT
  Sex: Male
  Weight: 106.58 kg

DRUGS (7)
  1. TOBI PODHALER [Suspect]
     Indication: CYSTIC FIBROSIS
     Dosage: 112 MG, TWICE A DAY
     Route: 055
     Dates: start: 2013
  2. TOBI PODHALER [Suspect]
     Indication: LUNG DISORDER
  3. ADVAIR [Concomitant]
     Dosage: UNK UKN, UNK
  4. SYMBICORT [Concomitant]
     Dosage: UNK UKN, UNK
  5. SPIRIVA [Concomitant]
     Dosage: UNK UKN, UNK
  6. ZITHROMYCIN [Concomitant]
     Dosage: UNK UKN, UNK
  7. HYPERTONIC SALINE SOLUTION [Concomitant]
     Dosage: UNK UKN, UNK

REACTIONS (1)
  - Malaise [Unknown]
